FAERS Safety Report 17383329 (Version 1)
Quarter: 2020Q1

REPORT INFORMATION
  Report Type: Spontaneous
  Country: US (occurrence: US)
  Receive Date: 20200206
  Receipt Date: 20200206
  Transmission Date: 20200409
  Serious: Yes (Other)
  Sender: FDA-Public Use
  Company Number: US-ABBVIE-19K-163-2855316-00

PATIENT
  Sex: Female
  Weight: 81.72 kg

DRUGS (5)
  1. METHOTREXATE. [Suspect]
     Active Substance: METHOTREXATE
     Indication: RHEUMATOID ARTHRITIS
     Route: 065
     Dates: start: 201701, end: 201802
  2. METHOTREXATE. [Suspect]
     Active Substance: METHOTREXATE
     Route: 048
     Dates: start: 20190417, end: 201905
  3. HUMIRA [Suspect]
     Active Substance: ADALIMUMAB
     Indication: RHEUMATOID ARTHRITIS
     Route: 058
     Dates: start: 201701, end: 2018
  4. EUCRISA [Suspect]
     Active Substance: CRISABOROLE
     Indication: PRODUCT USED FOR UNKNOWN INDICATION
     Route: 061
     Dates: start: 20190531
  5. TALTZ [Suspect]
     Active Substance: IXEKIZUMAB
     Indication: PRODUCT USED FOR UNKNOWN INDICATION
     Route: 065
     Dates: start: 201801, end: 201802

REACTIONS (14)
  - Malignant melanoma [Recovered/Resolved]
  - Blood viscosity decreased [Unknown]
  - Haemorrhagic diathesis [Unknown]
  - Skin exfoliation [Not Recovered/Not Resolved]
  - Pain [Not Recovered/Not Resolved]
  - Malignant melanoma [Recovered/Resolved]
  - Dry skin [Not Recovered/Not Resolved]
  - Rheumatoid arthritis [Unknown]
  - Erythema [Not Recovered/Not Resolved]
  - Rash papular [Unknown]
  - Drug ineffective [Unknown]
  - Pruritus [Unknown]
  - Urticaria [Recovering/Resolving]
  - Psoriasis [Unknown]

NARRATIVE: CASE EVENT DATE: 2018
